FAERS Safety Report 8088129-0 (Version None)
Quarter: 2012Q1

REPORT INFORMATION
  Report Type: 
  Country: None (occurrence: None)
  Receive Date: 20120131
  Receipt Date: 20110816
  Transmission Date: 20120608
  Serious: Yes (Other)
  Sender: FDA-Public Use
  Company Number: US-BIOGENIDEC-2011BI030705

PATIENT
  Age: 37 Year
  Sex: Female

DRUGS (11)
  1. TYSABRI [Suspect]
     Indication: MULTIPLE SCLEROSIS
     Route: 042
     Dates: start: 20081219, end: 20090318
  2. AMPYRA [Concomitant]
     Indication: GAIT DISTURBANCE
     Route: 048
     Dates: start: 20100101
  3. AMBIEN [Concomitant]
  4. AMPYRA [Concomitant]
     Indication: MULTIPLE SCLEROSIS
     Route: 048
     Dates: start: 20100101
  5. VITAMIN D [Concomitant]
  6. PROVIGIL [Concomitant]
  7. TYSABRI [Suspect]
     Route: 042
     Dates: start: 20090922, end: 20110718
  8. EFFEXOR XR [Concomitant]
     Dates: start: 20110601, end: 20110707
  9. CELEXA [Concomitant]
     Dates: start: 20110707
  10. SEROQUEL [Concomitant]
  11. KLONOPIN [Concomitant]

REACTIONS (1)
  - HEPATIC ENZYME INCREASED [None]
